FAERS Safety Report 7562346-8 (Version None)
Quarter: 2011Q2

REPORT INFORMATION
  Report Type: 
  Country: None (occurrence: None)
  Receive Date: 20110622
  Receipt Date: 20061018
  Transmission Date: 20111010
  Serious: Yes (Hospitalization)
  Sender: FDA-Public Use
  Company Number: GB-SOLVAY-00211004329

PATIENT
  Age: 24524 Day
  Sex: Male

DRUGS (9)
  1. TADALAFIL [Concomitant]
     Indication: ERECTILE DYSFUNCTION
     Dosage: DAILY DOSE: 20 MILLIGRAM(S)
     Route: 048
     Dates: start: 20031205
  2. ASPIRIN [Concomitant]
     Indication: PAIN
     Dosage: DAILY DOSE: 75 MILLIGRAM(S)
     Route: 048
     Dates: start: 19960101
  3. LANSOPRAZOLE [Concomitant]
     Indication: OESOPHAGITIS
     Dosage: DAILY DOSE:  UNKNOWN
     Route: 048
     Dates: start: 19990621
  4. PLACEBO [Suspect]
     Indication: ANDROGEN DEFICIENCY
     Dosage: DAILY DOSE: 7.5 GRAM(S)
     Route: 062
     Dates: start: 20060214, end: 20060904
  5. DICLOFENAC SODIUM [Concomitant]
     Dosage: DAILY DOSE:  UNKNOWN
     Route: 048
     Dates: start: 20061201
  6. TESTOSTERONE [Suspect]
     Indication: ANDROGEN DEFICIENCY
     Dosage: DAILY DOSE: 5 GRAM(S)
     Route: 062
     Dates: start: 20060905, end: 20061001
  7. DICLOFENAC SODIUM [Concomitant]
     Indication: ARTHRITIS
     Dosage: DAILY DOSE:  UNKNOWN
     Route: 048
     Dates: start: 19991004
  8. ALLOPURINOL [Concomitant]
     Indication: GOUT
     Dosage: DAILY DOSE:  UNKNOWN
     Route: 048
     Dates: start: 20030903
  9. ATORVASTATIN [Concomitant]
     Indication: HYPERCHOLESTEROLAEMIA
     Dosage: DAILY DOSE:  UNKNOWN
     Route: 048
     Dates: start: 19990621

REACTIONS (1)
  - TENDON RUPTURE [None]
